FAERS Safety Report 8490381-4 (Version None)
Quarter: 2012Q3

REPORT INFORMATION
  Report Type: 
  Country: None (occurrence: None)
  Receive Date: 20120705
  Receipt Date: 20120703
  Transmission Date: 20120928
  Serious: Yes (Other)
  Sender: FDA-Public Use
  Company Number: VE-PFIZER INC-2012137968

PATIENT
  Age: 84 Year
  Sex: Male

DRUGS (1)
  1. LIPITOR [Suspect]
     Indication: MYOCARDIAL INFARCTION
     Dosage: 20 MG, 1X/DAY
     Route: 048
     Dates: start: 20110101

REACTIONS (2)
  - EAR NEOPLASM MALIGNANT [None]
  - MYOCARDIAL INFARCTION [None]
